FAERS Safety Report 22397007 (Version 1)
Quarter: 2023Q2

REPORT INFORMATION
  Report Type: Spontaneous
  Country: US (occurrence: US)
  Receive Date: 20230602
  Receipt Date: 20230602
  Transmission Date: 20230722
  Serious: Yes (Other)
  Sender: FDA-Public Use
  Company Number: US-009507513-2305USA010371

PATIENT
  Sex: Male

DRUGS (1)
  1. ZOLINZA [Suspect]
     Active Substance: VORINOSTAT
     Indication: Cutaneous T-cell lymphoma
     Route: 048

REACTIONS (1)
  - Malignant dysphagia [Not Recovered/Not Resolved]
